FAERS Safety Report 21880958 (Version 2)
Quarter: 2023Q1

REPORT INFORMATION
  Report Type: Report from Study
  Country: RO (occurrence: RO)
  Receive Date: 20230118
  Receipt Date: 20230201
  Transmission Date: 20230418
  Serious: Yes (Hospitalization)
  Sender: FDA-Public Use
  Company Number: RO-002147023-NVSC2023RO008145

PATIENT

DRUGS (1)
  1. RUXOLITINIB [Suspect]
     Active Substance: RUXOLITINIB
     Indication: Primary myelofibrosis
     Dosage: 20 MG, BID (1 IN THE MORNING, 1 IN THE EVENING)
     Route: 048
     Dates: start: 202111

REACTIONS (3)
  - Illness [Not Recovered/Not Resolved]
  - Product availability issue [Unknown]
  - White blood cell count increased [Unknown]
